FAERS Safety Report 5106086-3 (Version None)
Quarter: 2006Q3

REPORT INFORMATION
  Report Type: 
  Country: None (occurrence: None)
  Receive Date: 20060912
  Receipt Date: 20060901
  Transmission Date: 20061208
  Serious: Yes (Hospitalization)
  Sender: FDA-Public Use
  Company Number: 146369USA

PATIENT
  Sex: Female

DRUGS (3)
  1. NIACIN [Suspect]
     Indication: VITAMIN SUPPLEMENTATION
  2. PROMETRIUM [Concomitant]
  3. CLIMARA [Concomitant]

REACTIONS (6)
  - FLUSHING [None]
  - HYPERPROLACTINAEMIA [None]
  - HYPONATRAEMIA [None]
  - RASH [None]
  - STRESS [None]
  - WATER INTOXICATION [None]
